FAERS Safety Report 8180487-1 (Version None)
Quarter: 2012Q1

REPORT INFORMATION
  Report Type: 
  Country: None (occurrence: None)
  Receive Date: 20120221
  Receipt Date: 20120214
  Transmission Date: 20120608
  Serious: Yes (Other)
  Sender: FDA-Public Use
  Company Number: 2011028066

PATIENT
  Age: 34 Year
  Sex: Female
  Weight: 88.905 kg

DRUGS (45)
  1. HIZENTRA [Suspect]
  2. HIZENTRA [Suspect]
  3. MAXALT MLT (RIZATRIPTAN BENZOATE) [Concomitant]
  4. TOPAMAX [Concomitant]
  5. ACYCLOVIR [Concomitant]
  6. MAGNESIUM (MAGNESIUM) [Concomitant]
  7. CYANO-PLEX (CYANO B-COMPLEX) [Concomitant]
  8. LORTAB [Concomitant]
  9. MULTIVITAMIN (ACCOMIN MULTIVITAMIN) [Concomitant]
  10. HIZENTRA [Suspect]
  11. SINGULAIR [Concomitant]
  12. XANAX [Concomitant]
  13. LASIX [Concomitant]
  14. PROAIR HFA (PROCATEROL HYDROCHLORIDE) [Concomitant]
  15. AVELOX [Concomitant]
  16. RECLAST [Concomitant]
  17. MS CONTIN [Concomitant]
  18. BACLOFEN [Concomitant]
  19. LOVAZA [Concomitant]
  20. TRINSICON (TRINSICON) [Concomitant]
  21. ADDERALL XR (OBETROL /01345401/) [Concomitant]
  22. HIZENTRA [Suspect]
  23. ZINC (ZINC) [Concomitant]
  24. GABITRIL [Concomitant]
  25. MUCINEX ER (GUAIFENESIN) [Concomitant]
  26. TORADOL [Concomitant]
  27. FLUVOXAMINE MALEATE (FLUVOXAMINE) [Concomitant]
  28. BENADRYL [Concomitant]
  29. PROMETHAZINE [Concomitant]
  30. DIFIL-G (MUCOSYL) [Concomitant]
  31. CALCIUM CARBONATE [Concomitant]
  32. ROCEPHIN [Concomitant]
  33. HIZENTRA [Suspect]
     Indication: IMMUNODEFICIENCY COMMON VARIABLE
     Dosage: SEE IMAGE
     Route: 058
     Dates: start: 20120206, end: 20120206
  34. HIZENTRA [Suspect]
     Indication: IMMUNODEFICIENCY COMMON VARIABLE
     Dosage: SEE IMAGE
     Route: 058
     Dates: start: 20100917
  35. HIZENTRA [Suspect]
     Indication: IMMUNODEFICIENCY COMMON VARIABLE
     Dosage: SEE IMAGE
     Route: 058
     Dates: start: 20110331
  36. HIZENTRA [Suspect]
  37. HIZENTRA [Suspect]
  38. PHENERGAN [Concomitant]
  39. PANTANASE (OLOPATADINE) [Concomitant]
  40. FLOVENT [Concomitant]
  41. REPREXAIN (HYDROCODONE W/IBUPROFEN) [Concomitant]
  42. HIZENTRA [Suspect]
  43. WELLBUTRIN XL [Concomitant]
  44. KLOR-CON [Concomitant]
  45. PREDNISONE TAB [Concomitant]

REACTIONS (7)
  - INFUSION SITE PAIN [None]
  - DYSPNOEA [None]
  - SINUSITIS [None]
  - CHEST DISCOMFORT [None]
  - SKIN INFECTION [None]
  - PANIC ATTACK [None]
  - PNEUMONIA [None]
